FAERS Safety Report 11780132 (Version 1)
Quarter: 2015Q4

REPORT INFORMATION
  Report Type: Spontaneous
  Country: US (occurrence: US)
  Receive Date: 20151126
  Receipt Date: 20151126
  Transmission Date: 20160305
  Serious: No
  Sender: FDA-Public Use
  Company Number: US-JNJFOC-20151021998

PATIENT
  Age: 4 Month
  Sex: Male
  Weight: 5.9 kg

DRUGS (1)
  1. CHILDRENS TYLENOL [Suspect]
     Active Substance: ACETAMINOPHEN
     Indication: PYREXIA
     Dosage: ONCE
     Route: 048
     Dates: start: 20151027

REACTIONS (3)
  - Drug administered to patient of inappropriate age [Unknown]
  - Product colour issue [Unknown]
  - Wrong technique in product usage process [Unknown]
